FAERS Safety Report 17881728 (Version 1)
Quarter: 2020Q2

REPORT INFORMATION
  Report Type: Spontaneous
  Country: ID (occurrence: ID)
  Receive Date: 20200610
  Receipt Date: 20200610
  Transmission Date: 20200714
  Serious: Yes (Death, Hospitalization, Other)
  Sender: FDA-Public Use
  Company Number: ID-SA-2020SA147120

PATIENT

DRUGS (10)
  1. METFORMIN [Concomitant]
     Active Substance: METFORMIN HYDROCHLORIDE
     Dosage: 300 MG, TID
  2. LOVENOX [Suspect]
     Active Substance: ENOXAPARIN SODIUM
     Indication: ANTICOAGULANT THERAPY
     Dosage: 0,6 CC/24HOURS
     Route: 042
     Dates: start: 20200413, end: 20200415
  3. AZITHROMYCIN ANHYDROUS. [Concomitant]
     Active Substance: AZITHROMYCIN ANHYDROUS
     Dosage: 500 MG
     Dates: start: 20200402
  4. LANTUS [Suspect]
     Active Substance: INSULIN GLARGINE
     Indication: TYPE 2 DIABETES MELLITUS
     Dosage: 10 IU, QD
     Route: 058
     Dates: start: 20200407
  5. APIDRA [Suspect]
     Active Substance: INSULIN GLULISINE
     Dosage: 12 IU, TID
     Route: 058
     Dates: start: 202004, end: 202004
  6. APIDRA [Suspect]
     Active Substance: INSULIN GLULISINE
     Dosage: 14 IU, TID
     Route: 058
     Dates: start: 202004, end: 20200415
  7. GLIMEPIRIDE. [Concomitant]
     Active Substance: GLIMEPIRIDE
     Dosage: 2 MG, QD
  8. LANTUS [Suspect]
     Active Substance: INSULIN GLARGINE
     Dosage: 16 IU, QD
     Route: 058
     Dates: end: 20200415
  9. APIDRA [Suspect]
     Active Substance: INSULIN GLULISINE
     Indication: TYPE 2 DIABETES MELLITUS
     Dosage: 10 IU, TID
     Route: 058
     Dates: start: 20200407, end: 202004
  10. LANTUS [Suspect]
     Active Substance: INSULIN GLARGINE
     Dosage: 14 IU, QD
     Route: 058
     Dates: start: 202004, end: 202004

REACTIONS (14)
  - Pleural effusion [Unknown]
  - Coronary artery disease [Unknown]
  - Cough [Unknown]
  - Hypertension [Unknown]
  - Pneumonia [Unknown]
  - Hilar lymphadenopathy [Unknown]
  - COVID-19 [Unknown]
  - Respiratory alkalosis [Unknown]
  - Chest pain [Unknown]
  - Sepsis [Fatal]
  - Hyponatraemia [Unknown]
  - Dyspepsia [Unknown]
  - Apnoea [Unknown]
  - Speech disorder [Unknown]

NARRATIVE: CASE EVENT DATE: 202004
